FAERS Safety Report 4720317-0 (Version None)
Quarter: 2005Q3

REPORT INFORMATION
  Report Type: 
  Country: None (occurrence: None)
  Receive Date: 20050719
  Receipt Date: 20050701
  Transmission Date: 20060218
  Serious: Yes (Hospitalization)
  Sender: FDA-Public Use
  Company Number: 2005BI007265

PATIENT
  Sex: Female

DRUGS (2)
  1. AVONEX [Suspect]
     Indication: MULTIPLE SCLEROSIS
     Dosage: 30 UG; QW; IM
     Route: 030
     Dates: start: 19960801
  2. AVONEX [Suspect]
     Indication: MULTIPLE SCLEROSIS
     Dosage: 30 UG;QW; IM
     Route: 030

REACTIONS (7)
  - BALANCE DISORDER [None]
  - DIPLOPIA [None]
  - FALL [None]
  - FATIGUE [None]
  - MIGRAINE [None]
  - VISION BLURRED [None]
  - VISUAL DISTURBANCE [None]
